FAERS Safety Report 9857521 (Version 3)
Quarter: 2014Q1

REPORT INFORMATION
  Report Type: Report from Study
  Country: MG (occurrence: MG)
  Receive Date: 20140131
  Receipt Date: 20140207
  Transmission Date: 20141002
  Serious: Yes (Death)
  Sender: FDA-Public Use
  Company Number: PHHY2013MG050844

PATIENT
  Age: 70 Year
  Sex: Female

DRUGS (4)
  1. GLIVEC [Suspect]
     Indication: CHRONIC MYELOID LEUKAEMIA
     Dosage: 400 MG, DAILY
     Route: 048
     Dates: start: 201004
  2. GLIVEC [Suspect]
     Dosage: 600 MG, DAILY
     Route: 048
     Dates: start: 201305
  3. TASIGNA [Suspect]
     Dosage: UNK UKN, UNK
  4. DASATINIB [Suspect]
     Dosage: UNK UKN, UNK

REACTIONS (9)
  - Death [Fatal]
  - Hypochromic anaemia [Unknown]
  - Thrombocytosis [Unknown]
  - Leukocytosis [Unknown]
  - Lymphocytosis [Unknown]
  - Eosinophilia [Unknown]
  - Blood lactate dehydrogenase increased [Unknown]
  - Drug resistance [Unknown]
  - Anaemia [Unknown]
